FAERS Safety Report 9648969 (Version 2)
Quarter: 2013Q4

REPORT INFORMATION
  Report Type: Spontaneous
  Country: ES (occurrence: ES)
  Receive Date: 20131028
  Receipt Date: 20131112
  Transmission Date: 20140711
  Serious: Yes (Death, Hospitalization)
  Sender: FDA-Public Use
  Company Number: ES-TEVA-438478ISR

PATIENT
  Age: 90 Year
  Sex: Female

DRUGS (3)
  1. RISPERIDONE [Suspect]
     Indication: HALLUCINATION, VISUAL
     Route: 065
  2. FUROSEMIDE [Suspect]
     Indication: ACUTE MYOCARDIAL INFARCTION
     Route: 042
  3. FUROSEMIDE [Suspect]
     Indication: ACUTE PULMONARY OEDEMA
     Route: 042

REACTIONS (1)
  - Pemphigoid [Fatal]
